FAERS Safety Report 18680604 (Version 1)
Quarter: 2020Q4

REPORT INFORMATION
  Report Type: Spontaneous
  Country: US (occurrence: US)
  Receive Date: 20201229
  Receipt Date: 20201229
  Transmission Date: 20210114
  Serious: No
  Sender: FDA-Public Use
  Company Number: US-PFIZER INC-2020509003

PATIENT
  Age: 69 Year
  Sex: Female

DRUGS (2)
  1. TAFAMIDIS [Suspect]
     Active Substance: TAFAMIDIS MEGLUMINE
     Indication: FAMILIAL AMYLOIDOSIS
     Dosage: 61 MG
     Route: 048
  2. TAFAMIDIS [Suspect]
     Active Substance: TAFAMIDIS MEGLUMINE
     Indication: RESTRICTIVE CARDIOMYOPATHY

REACTIONS (2)
  - Hypertension [Recovered/Resolved]
  - Hypotension [Recovered/Resolved]
